FAERS Safety Report 25603009 (Version 1)
Quarter: 2025Q3

REPORT INFORMATION
  Report Type: Spontaneous
  Country: US (occurrence: US)
  Receive Date: 20250724
  Receipt Date: 20250724
  Transmission Date: 20251021
  Serious: No
  Sender: GALPHARM INTERNATIONAL
  Company Number: US-PERRIGO-25US002045

PATIENT
  Age: 48 Year
  Sex: Male
  Weight: 86.168 kg

DRUGS (3)
  1. IBUPROFEN [Suspect]
     Active Substance: IBUPROFEN
     Indication: Toothache
     Route: 048
     Dates: start: 20241214, end: 20241215
  2. IBUPROFEN [Suspect]
     Active Substance: IBUPROFEN
     Dosage: 1000 MG, BID
     Route: 048
     Dates: start: 20241216, end: 20250103
  3. AMOXICILLIN [Concomitant]
     Active Substance: AMOXICILLIN
     Indication: Tooth infection
     Route: 065
     Dates: start: 20241214, end: 20241231

REACTIONS (4)
  - Drug ineffective [Unknown]
  - Overdose [Unknown]
  - Incorrect product administration duration [Unknown]
  - Inappropriate schedule of product administration [Unknown]

NARRATIVE: CASE EVENT DATE: 20241214
